FAERS Safety Report 11242637 (Version 1)
Quarter: 2015Q3

REPORT INFORMATION
  Report Type: Spontaneous
  Country: US (occurrence: None)
  Receive Date: 20150706
  Receipt Date: 20150706
  Transmission Date: 20151125
  Serious: Yes (Other)
  Sender: FDA-Public Use
  Company Number: None

PATIENT
  Age: 50 Year
  Sex: Female
  Weight: 106.14 kg

DRUGS (8)
  1. BETAMETHASONE DIPROPIONATE CREAM 0.05% [Suspect]
     Active Substance: BETAMETHASONE DIPROPIONATE
     Indication: DERMATITIS CONTACT
     Dosage: APPLIED TO A SURFACE, USUAALLY THE SKIN
     Route: 061
     Dates: start: 20150630, end: 20150704
  2. ADRENAL [Concomitant]
     Active Substance: EPINEPHRINE
  3. KIDNEY REPAIR [Concomitant]
  4. GOTU KOLA [Concomitant]
     Active Substance: GOTU KOLA
  5. VITAMIN D [Concomitant]
     Active Substance: CHOLECALCIFEROL
  6. VITAMIN E [Concomitant]
     Active Substance: .ALPHA.-TOCOPHEROL
  7. VITAMIN K [Concomitant]
     Active Substance: PHYTONADIONE
  8. GINGKO BILOBA [Concomitant]

REACTIONS (1)
  - No therapeutic response [None]

NARRATIVE: CASE EVENT DATE: 20150630
